FAERS Safety Report 9195030 (Version 1)
Quarter: 2013Q1

REPORT INFORMATION
  Report Type: Spontaneous
  Country: US (occurrence: US)
  Receive Date: 20130328
  Receipt Date: 20130328
  Transmission Date: 20140127
  Serious: No
  Sender: FDA-Public Use
  Company Number: US-ALLERGAN-1214582US

PATIENT
  Sex: Female

DRUGS (9)
  1. LATISSE 0.03% [Suspect]
     Indication: GROWTH OF EYELASHES
     Route: 061
  2. LATISSE 0.03% [Suspect]
  3. RESTASIS? [Concomitant]
     Indication: PRODUCT USED FOR UNKNOWN INDICATION
     Route: 047
  4. TOBRAMYCIN [Concomitant]
     Indication: PRODUCT USED FOR UNKNOWN INDICATION
  5. EPI PEN [Concomitant]
     Indication: PRODUCT USED FOR UNKNOWN INDICATION
  6. EPIDUO [Concomitant]
     Indication: PRODUCT USED FOR UNKNOWN INDICATION
  7. SPIRONOLACTONE [Concomitant]
     Indication: PRODUCT USED FOR UNKNOWN INDICATION
  8. OCUDOX [Concomitant]
     Indication: PRODUCT USED FOR UNKNOWN INDICATION
  9. FLUOROMETHOLONE, 0.1% [Concomitant]
     Indication: PRODUCT USED FOR UNKNOWN INDICATION

REACTIONS (4)
  - Eyelid disorder [Unknown]
  - Skin exfoliation [Unknown]
  - Pruritus [Unknown]
  - Erythema [Unknown]
